FAERS Safety Report 4553249-1 (Version None)
Quarter: 2005Q1

REPORT INFORMATION
  Report Type: 
  Country: None (occurrence: None)
  Receive Date: 20050112
  Receipt Date: 20050112
  Transmission Date: 20050727
  Serious: Yes (Life-Threatening, Hospitalization)
  Sender: FDA-Public Use
  Company Number: None

PATIENT
  Age: 58 Year
  Sex: Female
  Weight: 98 kg

DRUGS (10)
  1. CISPLATIN [Suspect]
     Indication: ENDOMETRIAL CANCER RECURRENT
     Dosage: 50MG/M2
     Dates: start: 20041201, end: 20041221
  2. PACLITAXEL [Suspect]
     Dosage: 160 MG/M2
     Dates: start: 20041202, end: 20041222
  3. ADRIAMYCIN PFS [Suspect]
     Dosage: 45MG/M2
     Dates: start: 20041201, end: 20041221
  4. NEUPOGEN [Suspect]
     Dosage: 300MG PER DAY
     Dates: start: 20051203, end: 20050103
  5. METFORMIN HCL [Concomitant]
  6. COZAAR [Concomitant]
  7. FLUOXETINE [Concomitant]
  8. OXYCODONE HCL [Concomitant]
  9. PERCOCET [Concomitant]
  10. VITAMIN [Concomitant]

REACTIONS (9)
  - ATRIAL HYPERTROPHY [None]
  - CEREBRAL ARTERY EMBOLISM [None]
  - CEREBRAL ARTERY OCCLUSION [None]
  - CEREBRAL DISORDER [None]
  - CEREBRAL INFARCTION [None]
  - CEREBROVASCULAR ACCIDENT [None]
  - NEUROTOXICITY [None]
  - PERICARDIAL EFFUSION [None]
  - SPEECH DISORDER [None]
